FAERS Safety Report 8514187-2 (Version None)
Quarter: 2012Q3

REPORT INFORMATION
  Report Type: 
  Country: None (occurrence: None)
  Receive Date: 20120717
  Receipt Date: 20120712
  Transmission Date: 20120928
  Serious: Yes (Life-Threatening)
  Sender: FDA-Public Use
  Company Number: FR-PFIZER INC-2012167327

PATIENT
  Age: 80 Year
  Sex: Male
  Weight: 85 kg

DRUGS (7)
  1. ASPIRIN [Concomitant]
     Dosage: 75 MG, 1X/DAY
     Route: 048
  2. ATORVASTATIN [Suspect]
     Dosage: 10 MG, 1X/DAY
     Route: 048
     Dates: start: 20050101, end: 20120607
  3. IRBESARTAN [Suspect]
     Dosage: 300 MG, 1X/DAY
     Route: 048
     Dates: start: 20060101, end: 20120607
  4. IVABRADINE [Concomitant]
     Dosage: UNK
     Route: 048
     Dates: start: 20120515
  5. BISOPROLOL FUMARATE [Suspect]
     Dosage: 10 MG, 1X/DAY
     Route: 048
     Dates: start: 19920101, end: 20120607
  6. PANTOPRAZOLE [Concomitant]
     Dosage: 20 MG, 1X/DAY
  7. CIPRALAN [Concomitant]
     Dosage: 130 MG, 2X/DAY
     Route: 048
     Dates: start: 19920101, end: 20120501

REACTIONS (1)
  - INTERSTITIAL LUNG DISEASE [None]
